FAERS Safety Report 9720884 (Version 1)
Quarter: 2013Q4

REPORT INFORMATION
  Report Type: Spontaneous
  Country: FR (occurrence: FR)
  Receive Date: 20131129
  Receipt Date: 20131129
  Transmission Date: 20140711
  Serious: Yes (Hospitalization)
  Sender: FDA-Public Use
  Company Number: FR-SA-2013SA120708

PATIENT
  Age: 81 Year
  Sex: Female

DRUGS (10)
  1. RIFADINE [Suspect]
     Indication: OSTEITIS
     Route: 048
     Dates: start: 20130918
  2. OFLOXACIN [Suspect]
     Indication: OSTEITIS
     Route: 048
     Dates: start: 20130918
  3. FRAGMIN [Concomitant]
  4. ARAVA [Concomitant]
  5. KERLONE [Concomitant]
  6. LEVOTHYROX [Concomitant]
  7. EUPANTOL [Concomitant]
  8. TAHOR [Concomitant]
  9. DIFFU K [Concomitant]
  10. AMLODIPINE [Concomitant]

REACTIONS (2)
  - Lipase increased [Recovering/Resolving]
  - Gamma-glutamyltransferase increased [Recovering/Resolving]
